FAERS Safety Report 8587178-3 (Version None)
Quarter: 2012Q3

REPORT INFORMATION
  Report Type: 
  Country: None (occurrence: None)
  Receive Date: 20120810
  Receipt Date: 20111010
  Transmission Date: 20120928
  Serious: No
  Sender: FDA-Public Use
  Company Number: US-ASTRAZENECA-2010SE12881

PATIENT
  Age: 67 Year
  Sex: Female

DRUGS (1)
  1. ARIMIDEX [Suspect]
     Route: 048

REACTIONS (8)
  - ANXIETY [None]
  - AGITATION [None]
  - BRONCHITIS [None]
  - PAIN IN EXTREMITY [None]
  - NERVOUSNESS [None]
  - FATIGUE [None]
  - FEELING JITTERY [None]
  - DRUG DOSE OMISSION [None]
